FAERS Safety Report 5216275-5 (Version None)
Quarter: 2007Q1

REPORT INFORMATION
  Report Type: 
  Country: None (occurrence: None)
  Receive Date: 20070123
  Receipt Date: 20070117
  Transmission Date: 20070707
  Serious: Yes (Hospitalization)
  Sender: FDA-Public Use
  Company Number: US-BOEHRINGER INGELHEIM PHARMACEUTICALS, INC.-2007-BP-00858BP

PATIENT
  Sex: Female

DRUGS (3)
  1. MICARDIS [Suspect]
     Route: 048
  2. PENICILLIN [Suspect]
  3. PENICILLIN [Concomitant]

REACTIONS (2)
  - HYPERSENSITIVITY [None]
  - PULMONARY OEDEMA [None]
